FAERS Safety Report 18136283 (Version 1)
Quarter: 2020Q3

REPORT INFORMATION
  Report Type: Spontaneous
  Country: US (occurrence: US)
  Receive Date: 20200811
  Receipt Date: 20200811
  Transmission Date: 20201103
  Serious: Yes (Hospitalization)
  Sender: FDA-Public Use
  Company Number: US-AMERICAN REGENT INC-2020001615

PATIENT
  Age: 17 Year
  Sex: Female

DRUGS (7)
  1. AMFETAMINE W/DEXAMFETAMINE [Concomitant]
     Active Substance: AMPHETAMINE SULFATE\DEXTROAMPHETAMINE
     Indication: ATTENTION DEFICIT HYPERACTIVITY DISORDER
     Dosage: UNK
     Route: 065
  2. TESTOSTERONE CYPIONATE INJECTION (0517?1830?01) [Suspect]
     Active Substance: TESTOSTERONE CYPIONATE
     Indication: GENDER DYSPHORIA
     Dosage: STARTED AT 40 MG IM INJECTION (25 MG/M2) BIWEEKLY 9 MONTHS BEFORE PRESENTATION
     Route: 030
  3. ALBUTEROL                          /00139501/ [Concomitant]
     Active Substance: ALBUTEROL
     Indication: ASTHMA
     Dosage: UNK
     Route: 065
  4. VENLAFAXINE [Concomitant]
     Active Substance: VENLAFAXINE HYDROCHLORIDE
     Indication: DEPRESSION
     Dosage: UNK
     Route: 065
  5. LEUPROLIDE                         /00726901/ [Concomitant]
     Active Substance: LEUPROLIDE
     Indication: GENDER DYSPHORIA
     Dosage: IM INJECTION EVERY 3 MONTHS, STARTED 18 MONTHS BEFORE PRESENTATION TO EMERGENCY DEPARTMENT
     Route: 030
  6. MONTELUKAST [Concomitant]
     Active Substance: MONTELUKAST SODIUM
     Indication: ASTHMA
     Dosage: UNK
     Route: 065
  7. TESTOSTERONE CYPIONATE INJECTION (0517?1830?01) [Suspect]
     Active Substance: TESTOSTERONE CYPIONATE
     Dosage: INCREASED TO 80 MG IM (44 MG/M2) INJECTION BIWEEKLY 3 MONTHS BEFORE THE EVENT
     Route: 030

REACTIONS (3)
  - Embolism venous [Recovering/Resolving]
  - Product use in unapproved indication [Unknown]
  - Product use issue [Unknown]
